FAERS Safety Report 8802014 (Version 1)
Quarter: 2012Q4

REPORT INFORMATION
  Report Type: 
  Country: FR (occurrence: FR)
  Receive Date: 20120921
  Receipt Date: 20120921
  Transmission Date: 20130627
  Serious: Yes (Other)
  Sender: FDA-Public Use
  Company Number: FR-PFIZER INC-2012227547

PATIENT
  Age: 45 Year
  Sex: Female

DRUGS (1)
  1. SALAZOPYRINE [Suspect]
     Indication: ANKYLOSING SPONDYLITIS
     Dosage: 1500 mg, 1x/day
     Route: 048
     Dates: start: 20090302, end: 20120824

REACTIONS (2)
  - Asthenia [Not Recovered/Not Resolved]
  - Eosinophilia [Not Recovered/Not Resolved]
